FAERS Safety Report 21451312 (Version 1)
Quarter: 2022Q4

REPORT INFORMATION
  Report Type: Spontaneous
  Country: US (occurrence: US)
  Receive Date: 20221013
  Receipt Date: 20221013
  Transmission Date: 20230113
  Serious: No
  Sender: FDA-Public Use
  Company Number: US-INDIVIOR US-INDV-133338-2022

PATIENT
  Sex: Male

DRUGS (1)
  1. SUBLOCADE [Suspect]
     Active Substance: BUPRENORPHINE
     Indication: Drug dependence
     Dosage: 100 MILLIGRAM, QMO
     Route: 058
     Dates: start: 20210917

REACTIONS (3)
  - Intentional dose omission [Recovered/Resolved]
  - Drug withdrawal syndrome [Unknown]
  - Drug dependence [Unknown]

NARRATIVE: CASE EVENT DATE: 20211201
